FAERS Safety Report 4477630-4 (Version None)
Quarter: 2004Q4

REPORT INFORMATION
  Report Type: 
  Country: None (occurrence: None)
  Receive Date: 20041014
  Receipt Date: 20041001
  Transmission Date: 20050328
  Serious: Yes (Other)
  Sender: FDA-Public Use
  Company Number: 2004051682

PATIENT
  Age: 71 Year
  Sex: Female
  Weight: 83.9154 kg

DRUGS (12)
  1. NEURONTIN [Suspect]
     Indication: NERVE INJURY
     Dosage: 900 MG (300 MG, 3 IN 1 D), ORAL
     Route: 048
     Dates: start: 20030901
  2. VIOXX [Suspect]
     Indication: ILL-DEFINED DISORDER
     Dosage: ORAL
     Route: 048
  3. FEXOFENADINE HYDROCHLORIDE [Concomitant]
  4. FLUTICASONE PROPIONATE [Concomitant]
  5. ATORVASTATIN (ATORVASTATIN) [Concomitant]
  6. GEZOR (HYDROCHLOROTHIAZIDE, QUINAPRIL HYDROCHLORIDE) [Concomitant]
  7. PROPRANOLOL HYDROCHLORIDE (PROPRANOLOL HYDROCHLORIDE) [Concomitant]
  8. BACLOFEN [Concomitant]
  9. SERTRALINE HCL [Concomitant]
  10. ALPRAZOLAM [Concomitant]
  11. POTASSIUM CHLORIDE [Concomitant]
  12. FUROSEMIDE [Concomitant]

REACTIONS (4)
  - DIFFICULTY IN WALKING [None]
  - DISEASE PROGRESSION [None]
  - MYELOPATHY [None]
  - OEDEMA PERIPHERAL [None]
